FAERS Safety Report 15197282 (Version 1)
Quarter: 2018Q3

REPORT INFORMATION
  Report Type: Spontaneous
  Country: US (occurrence: US)
  Receive Date: 20180626
  Receipt Date: 20180626
  Transmission Date: 20181010
  Serious: No
  Sender: FDA-Public Use
  Company Number: None

PATIENT
  Age: 36 Year
  Sex: Female
  Weight: 90 kg

DRUGS (5)
  1. PROBIOTICS [Concomitant]
     Active Substance: PROBIOTICS NOS
  2. DULOXETINE. [Concomitant]
     Active Substance: DULOXETINE
  3. MAGNESIUM [Concomitant]
     Active Substance: MAGNESIUM
  4. VYVANSE [Suspect]
     Active Substance: LISDEXAMFETAMINE DIMESYLATE
     Indication: ATTENTION DEFICIT/HYPERACTIVITY DISORDER
     Dosage: ?          QUANTITY:1 CAPSULE(S);?
     Route: 048
     Dates: start: 20180622, end: 20180626
  5. MEGARED KRILL OIL [Concomitant]

REACTIONS (10)
  - Sedation [None]
  - Fatigue [None]
  - Feeling abnormal [None]
  - Somnolence [None]
  - Cognitive disorder [None]
  - Loss of personal independence in daily activities [None]
  - Thinking abnormal [None]
  - Reading disorder [None]
  - Impaired work ability [None]
  - Memory impairment [None]

NARRATIVE: CASE EVENT DATE: 20180625
